FAERS Safety Report 8372545-3 (Version None)
Quarter: 2012Q2

REPORT INFORMATION
  Report Type: 
  Country: None (occurrence: None)
  Receive Date: 20120521
  Receipt Date: 20120514
  Transmission Date: 20120825
  Serious: Yes (Other)
  Sender: FDA-Public Use
  Company Number: PHHY2012PT041830

PATIENT
  Sex: Male

DRUGS (3)
  1. PAMIDRONATE DISODIUM [Suspect]
     Indication: HYPERCALCAEMIA
  2. CALCITONIN SALMON [Concomitant]
  3. PAMIDRONATE DISODIUM [Suspect]
     Indication: HYPERPARATHYROIDISM PRIMARY

REACTIONS (4)
  - CONDUCTION DISORDER [None]
  - PYELOCALIECTASIS [None]
  - FOETAL GROWTH RESTRICTION [None]
  - LOW BIRTH WEIGHT BABY [None]
